FAERS Safety Report 14689114 (Version 1)
Quarter: 2018Q1

REPORT INFORMATION
  Report Type: Spontaneous
  Country: US (occurrence: US)
  Receive Date: 20180328
  Receipt Date: 20180328
  Transmission Date: 20180509
  Serious: Yes (Hospitalization, Other)
  Sender: FDA-Public Use
  Company Number: US-GLAXOSMITHKLINE-US2018051227

PATIENT
  Age: 71 Year
  Sex: Female

DRUGS (3)
  1. BREO ELLIPTA [Suspect]
     Active Substance: FLUTICASONE FUROATE\VILANTEROL TRIFENATATE
     Indication: BRONCHITIS
     Dosage: 2 PUFF(S), QD
     Route: 055
     Dates: start: 201803
  2. MUCINEX [Concomitant]
     Active Substance: GUAIFENESIN
  3. AUGMENTIN [Concomitant]
     Active Substance: AMOXICILLIN\CLAVULANATE POTASSIUM

REACTIONS (6)
  - Pancreatitis [Recovering/Resolving]
  - Chest discomfort [Recovering/Resolving]
  - Sinus headache [Recovering/Resolving]
  - Pneumonia [Recovering/Resolving]
  - Dehydration [Recovering/Resolving]
  - Prescribed overdose [Recovered/Resolved]

NARRATIVE: CASE EVENT DATE: 201803
